FAERS Safety Report 19814080 (Version 5)
Quarter: 2021Q4

REPORT INFORMATION
  Report Type: Report from Study
  Country: US (occurrence: US)
  Receive Date: 20210909
  Receipt Date: 20211230
  Transmission Date: 20220303
  Serious: No
  Sender: FDA-Public Use
  Company Number: NVSC2021US204352

PATIENT
  Sex: Female

DRUGS (2)
  1. ENTRESTO [Suspect]
     Active Substance: SACUBITRIL\VALSARTAN
     Indication: Product used for unknown indication
     Dosage: 1 DF, BID, (24/26MG)
     Route: 048
     Dates: start: 20210818
  2. VALSARTAN [Concomitant]
     Active Substance: VALSARTAN
     Indication: Product used for unknown indication
     Dosage: UNK
     Route: 065

REACTIONS (11)
  - Blood pressure increased [Unknown]
  - Memory impairment [Unknown]
  - Paranasal sinus discomfort [Unknown]
  - Throat irritation [Unknown]
  - Sinusitis [Unknown]
  - Palpitations [Unknown]
  - Malaise [Unknown]
  - Headache [Unknown]
  - Stress [Unknown]
  - Cough [Unknown]
  - Product dose omission issue [Unknown]
